FAERS Safety Report 21265638 (Version 1)
Quarter: 2022Q3

REPORT INFORMATION
  Report Type: Spontaneous
  Country: US (occurrence: None)
  Receive Date: 20220826
  Receipt Date: 20220826
  Transmission Date: 20221027
  Serious: Yes (Hospitalization)
  Sender: FDA-Public Use
  Company Number: None

PATIENT
  Age: 63 Year
  Sex: Male

DRUGS (3)
  1. POSACONAZOLE [Suspect]
     Active Substance: POSACONAZOLE
     Indication: Mucormycosis
     Dosage: FREQUENCY : DAILY;?
     Route: 048
     Dates: start: 20211229
  2. POSACONAZOLE [Suspect]
     Active Substance: POSACONAZOLE
     Dosage: FREQUENCY : DAILY;?
     Route: 048
     Dates: start: 20220217
  3. FUROSEMIDE [Suspect]
     Active Substance: FUROSEMIDE
     Indication: Hypertension
     Dosage: FREQUENCY : DAILY;?
     Route: 048
     Dates: start: 20220217

REACTIONS (5)
  - Asthenia [None]
  - Peripheral swelling [None]
  - Pain in extremity [None]
  - Dysuria [None]
  - Hypokalaemia [None]

NARRATIVE: CASE EVENT DATE: 20220617
